FAERS Safety Report 8451091-2 (Version None)
Quarter: 2012Q2

REPORT INFORMATION
  Report Type: 
  Country: None (occurrence: None)
  Receive Date: 20120620
  Receipt Date: 20120612
  Transmission Date: 20120825
  Serious: Yes (Hospitalization)
  Sender: FDA-Public Use
  Company Number: FR-ROCHE-1078311

PATIENT
  Sex: Male
  Weight: 81 kg

DRUGS (4)
  1. EVEROLIMUS [Suspect]
     Indication: TRANSPLANT REJECTION
     Route: 002
     Dates: start: 20120521, end: 20120608
  2. PREDNISOLONE [Suspect]
     Indication: TRANSPLANT REJECTION
     Dosage: EFFERVESCENT TABLET
     Dates: start: 20120517
  3. CELLCEPT [Suspect]
     Indication: TRANSPLANT REJECTION
     Route: 002
     Dates: start: 20120517, end: 20120608
  4. CYCLOSPORINE [Suspect]
     Indication: TRANSPLANT REJECTION
     Route: 002
     Dates: start: 20120609

REACTIONS (3)
  - THROMBOCYTOPENIA [None]
  - LEUKOPENIA [None]
  - SMALL INTESTINAL OBSTRUCTION [None]
